FAERS Safety Report 15566333 (Version 1)
Quarter: 2018Q4

REPORT INFORMATION
  Report Type: Spontaneous
  Country: IT (occurrence: IT)
  Receive Date: 20181030
  Receipt Date: 20181030
  Transmission Date: 20190205
  Serious: Yes (Other)
  Sender: FDA-Public Use
  Company Number: IT-PFIZER INC-2018443308

PATIENT
  Age: 45 Year
  Sex: Female

DRUGS (7)
  1. CIPROFLOXACIN. [Concomitant]
     Active Substance: CIPROFLOXACIN
  2. FEMARA [Concomitant]
     Active Substance: LETROZOLE
     Dates: start: 20170623
  3. IBRANCE [Suspect]
     Active Substance: PALBOCICLIB
     Indication: BREAST CANCER
     Dosage: 125 MG, 1X/DAY
     Route: 048
     Dates: start: 20170623
  4. TACHIPIRINA [Concomitant]
     Active Substance: ACETAMINOPHEN
  5. TRIPTORELIN [Concomitant]
     Active Substance: TRIPTORELIN
  6. DECAPEPTYL [GONADORELIN] [Concomitant]
     Active Substance: GONADORELIN
  7. MYCOSTATIN [Concomitant]
     Active Substance: NYSTATIN

REACTIONS (5)
  - Dry eye [Unknown]
  - Neutropenia [Unknown]
  - Thrombocytopenia [Unknown]
  - Hyperpyrexia [Recovered/Resolved]
  - Stomatitis [Recovered/Resolved]

NARRATIVE: CASE EVENT DATE: 20170707
